FAERS Safety Report 7588720-1 (Version None)
Quarter: 2011Q3

REPORT INFORMATION
  Report Type: 
  Country: None (occurrence: None)
  Receive Date: 20110705
  Receipt Date: 20110613
  Transmission Date: 20111222
  Serious: Yes (Hospitalization, Other)
  Sender: FDA-Public Use
  Company Number: US-BAYER-2011-051074

PATIENT
  Age: 23 Year
  Sex: Female
  Weight: 66.667 kg

DRUGS (1)
  1. YAZ [Suspect]
     Indication: MENSTRUATION IRREGULAR
     Dosage: UNK
     Dates: start: 20091101, end: 20100101

REACTIONS (10)
  - PAIN [None]
  - ANXIETY [None]
  - FEAR [None]
  - ABASIA [None]
  - PULMONARY EMBOLISM [None]
  - INJURY [None]
  - PSYCHIATRIC SYMPTOM [None]
  - DEEP VEIN THROMBOSIS [None]
  - ANHEDONIA [None]
  - HYPOAESTHESIA [None]
